FAERS Safety Report 7361019-4 (Version None)
Quarter: 2011Q1

REPORT INFORMATION
  Report Type: 
  Country: None (occurrence: None)
  Receive Date: 20110318
  Receipt Date: 20110310
  Transmission Date: 20110831
  Serious: No
  Sender: FDA-Public Use
  Company Number: BR-ROCHE-703178

PATIENT
  Weight: 2.8 kg

DRUGS (1)
  1. ROACUTAN [Suspect]
     Route: 064
     Dates: end: 20090301

REACTIONS (2)
  - PREGNANCY [None]
  - NORMAL NEWBORN [None]
